FAERS Safety Report 9495574 (Version 2)
Quarter: 2013Q3

REPORT INFORMATION
  Report Type: Report from Study
  Country: US (occurrence: US)
  Receive Date: 20130903
  Receipt Date: 20130916
  Transmission Date: 20140515
  Serious: Yes (Other)
  Sender: FDA-Public Use
  Company Number: US-US-EMD SERONO, INC.-7234195

PATIENT
  Sex: Female
  Weight: 90 kg

DRUGS (4)
  1. REBIF [Suspect]
     Indication: MULTIPLE SCLEROSIS
     Route: 058
     Dates: start: 20090527
  2. PROVIGIL [Concomitant]
     Indication: FATIGUE
     Route: 048
  3. TEGRETOL [Concomitant]
     Indication: TRIGEMINAL NEURALGIA
     Route: 048
  4. ELAVIL                             /00002202/ [Concomitant]
     Indication: INSOMNIA
     Route: 048

REACTIONS (6)
  - Sepsis [Unknown]
  - Nausea [Not Recovered/Not Resolved]
  - Malaise [Not Recovered/Not Resolved]
  - Influenza like illness [Not Recovered/Not Resolved]
  - Injection site abscess [Recovered/Resolved]
  - Injection site induration [Not Recovered/Not Resolved]
